FAERS Safety Report 7394064-3 (Version None)
Quarter: 2011Q2

REPORT INFORMATION
  Report Type: 
  Country: None (occurrence: None)
  Receive Date: 20110405
  Receipt Date: 20110107
  Transmission Date: 20111010
  Serious: No
  Sender: FDA-Public Use
  Company Number: US-AMGEN-USASP2011001080

PATIENT
  Age: 68 Year
  Sex: Male

DRUGS (5)
  1. VITAMINS                           /00067501/ [Concomitant]
  2. VIDAZA [Concomitant]
  3. CHONDROITIN [Concomitant]
  4. GLUCOSAMINE [Concomitant]
  5. NEULASTA [Suspect]
     Indication: CHEMOTHERAPY
     Dates: start: 20110104

REACTIONS (10)
  - PYREXIA [None]
  - RED BLOOD CELL COUNT DECREASED [None]
  - SLUGGISHNESS [None]
  - PLATELET COUNT DECREASED [None]
  - POLLAKIURIA [None]
  - INSOMNIA [None]
  - HAEMATOCRIT DECREASED [None]
  - HAEMOGLOBIN DECREASED [None]
  - PAIN [None]
  - HEADACHE [None]
